FAERS Safety Report 10103310 (Version 1)
Quarter: 2014Q2

REPORT INFORMATION
  Report Type: Spontaneous
  Country: US (occurrence: US)
  Receive Date: 20140424
  Receipt Date: 20140424
  Transmission Date: 20141212
  Serious: No
  Sender: FDA-Public Use
  Company Number: US-BRISTOL-MYERS SQUIBB COMPANY-20240776

PATIENT
  Age: 86 Year
  Sex: Male

DRUGS (7)
  1. ELIQUIS [Suspect]
     Dates: start: 20130617
  2. SOTALOL [Concomitant]
  3. COZAAR [Concomitant]
  4. FISH OIL [Concomitant]
  5. GLUCOSAMINE [Concomitant]
  6. COQ10 [Concomitant]
  7. VITAMIN B12 [Concomitant]

REACTIONS (1)
  - Rosacea [Not Recovered/Not Resolved]
